FAERS Safety Report 7735660-0 (Version None)
Quarter: 2011Q3

REPORT INFORMATION
  Report Type: 
  Country: None (occurrence: None)
  Receive Date: 20110907
  Receipt Date: 20110826
  Transmission Date: 20111222
  Serious: Yes (Death, Life-Threatening, Hospitalization)
  Sender: FDA-Public Use
  Company Number: JP-AMGEN-JPNCT2011032470

PATIENT
  Age: 81 Year
  Sex: Male
  Weight: 57 kg

DRUGS (18)
  1. ANTEBATE [Concomitant]
     Dosage: UNK
     Route: 062
  2. GENTAMICIN SULFATE [Concomitant]
     Dosage: UNK
     Route: 062
  3. FENTOS [Concomitant]
     Route: 062
     Dates: start: 20110512
  4. PANITUMUMAB [Suspect]
     Dosage: 6 MG/KG, Q2WK
     Route: 041
     Dates: start: 20110412, end: 20110606
  5. LANTUS [Concomitant]
     Dosage: UNK
     Route: 042
  6. THEO-DUR [Concomitant]
     Indication: EMPHYSEMA
     Route: 048
  7. MINOCYCLINE HCL [Concomitant]
     Route: 048
  8. ALLEGRA [Concomitant]
     Route: 048
  9. LAMISIL [Concomitant]
     Route: 048
     Dates: end: 20110214
  10. AMARYL [Concomitant]
     Route: 048
  11. LEUCOVORIN CALCIUM [Concomitant]
     Indication: COLORECTAL CANCER
     Dosage: 150 MG, UNK
     Route: 041
     Dates: start: 20110412, end: 20110606
  12. LOXONIN [Concomitant]
     Route: 048
  13. FLUOROURACIL [Concomitant]
     Indication: COLORECTAL CANCER
     Dosage: 1000 MG, UNK
     Route: 041
     Dates: start: 20110412, end: 20110606
  14. SALMETEROL XINAFOATE [Concomitant]
     Route: 055
  15. HOKUNALIN [Concomitant]
     Route: 062
  16. PANITUMUMAB [Suspect]
     Indication: COLORECTAL CANCER
     Dosage: 6 MG/KG, Q2WK
     Route: 041
     Dates: start: 20100804, end: 20101005
  17. PANITUMUMAB [Suspect]
     Dosage: 6 MG/KG, Q2WK
     Route: 041
     Dates: start: 20101208, end: 20110315
  18. CETUXIMAB [Suspect]
     Indication: COLORECTAL CANCER
     Dosage: UNK
     Route: 041
     Dates: start: 20090601, end: 20100701

REACTIONS (4)
  - INTERSTITIAL LUNG DISEASE [None]
  - HYPOMAGNESAEMIA [None]
  - DERMATITIS ACNEIFORM [None]
  - PARONYCHIA [None]
